FAERS Safety Report 4323832-7 (Version None)
Quarter: 2004Q1

REPORT INFORMATION
  Report Type: 
  Country: None (occurrence: None)
  Receive Date: 20040324
  Receipt Date: 20040324
  Transmission Date: 20041129
  Serious: Yes (Hospitalization)
  Sender: FDA-Public Use
  Company Number: None

PATIENT
  Age: 69 Year
  Sex: Female
  Weight: 104 kg

DRUGS (14)
  1. LOPID [Suspect]
     Indication: BLOOD CHOLESTEROL INCREASED
     Dosage: 600 MG PO BID (AS OUTPATIENT)
     Route: 048
  2. ZETIA [Suspect]
     Indication: BLOOD CHOLESTEROL INCREASED
     Dosage: 10 MG PO DAILY (ON AS OUTPATIENT)
     Route: 048
  3. ALLEGRA [Concomitant]
  4. ZYPREXA [Concomitant]
  5. RESTORIL [Concomitant]
  6. CAPTOPRIL [Concomitant]
  7. ASPIRIN [Concomitant]
  8. LOPRESSOR [Concomitant]
  9. TESSALON [Concomitant]
  10. FLUOXETINE [Concomitant]
  11. LASIX [Concomitant]
  12. CELEBREX [Concomitant]
  13. LEVOXYL [Concomitant]
  14. GLIPIZIDE [Concomitant]

REACTIONS (6)
  - ABDOMINAL PAIN [None]
  - CHEST PAIN [None]
  - CHROMATURIA [None]
  - FALL [None]
  - RHABDOMYOLYSIS [None]
  - URINE ODOUR ABNORMAL [None]
